FAERS Safety Report 14772241 (Version 1)
Quarter: 2018Q2

REPORT INFORMATION
  Report Type: Spontaneous
  Country: US (occurrence: US)
  Receive Date: 20180418
  Receipt Date: 20180418
  Transmission Date: 20180711
  Serious: No
  Sender: FDA-Public Use
  Company Number: US-CELGENEUS-USA-20180405183

PATIENT
  Age: 38 Year
  Sex: Female

DRUGS (6)
  1. OTEZLA [Suspect]
     Active Substance: APREMILAST
     Dosage: 10MG AM / 20MG PM (DAY 3)
     Route: 048
  2. OTEZLA [Suspect]
     Active Substance: APREMILAST
     Dosage: 20MG AM/PM (DAY 4)
     Route: 048
  3. OTEZLA [Suspect]
     Active Substance: APREMILAST
     Indication: PSORIASIS
     Dosage: 10 MILLIGRAM
     Route: 048
     Dates: start: 20180320
  4. OTEZLA [Suspect]
     Active Substance: APREMILAST
     Dosage: 10MG AM/PM (DAY 2)
     Route: 048
  5. OTEZLA [Suspect]
     Active Substance: APREMILAST
     Dosage: 20MG AM/30MG PM (DAY 5)
     Route: 048
  6. OTEZLA [Suspect]
     Active Substance: APREMILAST
     Dosage: 60 MILLIGRAM
     Route: 048

REACTIONS (1)
  - Nausea [Recovering/Resolving]

NARRATIVE: CASE EVENT DATE: 20180322
